FAERS Safety Report 8138880-9 (Version None)
Quarter: 2012Q1

REPORT INFORMATION
  Report Type: 
  Country: None (occurrence: None)
  Receive Date: 20120215
  Receipt Date: 20120208
  Transmission Date: 20120608
  Serious: Yes (Hospitalization)
  Sender: FDA-Public Use
  Company Number: GB-BAYER-2012-012593

PATIENT
  Age: 42 Year
  Sex: Female

DRUGS (2)
  1. ASPIRIN [Suspect]
  2. CLOZARIL [Suspect]
     Indication: SCHIZOPHRENIA
     Dosage: UNK
     Route: 048
     Dates: start: 20041007

REACTIONS (2)
  - ACCIDENTAL OVERDOSE [None]
  - LOSS OF CONSCIOUSNESS [None]
